FAERS Safety Report 7316215-9 (Version None)
Quarter: 2011Q1

REPORT INFORMATION
  Report Type: 
  Country: None (occurrence: None)
  Receive Date: 20110225
  Receipt Date: 20110211
  Transmission Date: 20110831
  Serious: Yes (Life-Threatening, Hospitalization, Other)
  Sender: FDA-Public Use
  Company Number: FR-PFIZER INC-2010029204

PATIENT
  Age: 51 Year
  Sex: Male

DRUGS (6)
  1. CHAMPIX [Suspect]
     Dosage: UNK
     Route: 048
     Dates: start: 20090101, end: 20090328
  2. TRUVADA [Concomitant]
     Indication: HIV INFECTION
     Dosage: 200/245 MG ONCE DAILY
     Route: 048
     Dates: start: 20050101
  3. CHAMPIX [Suspect]
     Dosage: UNK
     Route: 048
     Dates: start: 20090101, end: 20090101
  4. FOSAMPRENAVIR [Concomitant]
     Indication: HIV INFECTION
     Dosage: 700 MG, 2X/DAY
     Route: 048
     Dates: start: 20050101
  5. CHAMPIX [Suspect]
     Indication: SMOKING CESSATION THERAPY
     Dosage: UNK
     Route: 048
     Dates: start: 20090101, end: 20090101
  6. NORVIR [Concomitant]
     Indication: HIV INFECTION
     Dosage: 100 MG, 2X/DAY
     Route: 048
     Dates: start: 20050101

REACTIONS (2)
  - INSOMNIA [None]
  - EPILEPSY [None]
